FAERS Safety Report 25430220 (Version 1)
Quarter: 2025Q2

REPORT INFORMATION
  Report Type: Spontaneous
  Country: US (occurrence: None)
  Receive Date: 20250612
  Receipt Date: 20250612
  Transmission Date: 20250716
  Serious: No
  Sender: FDA-CTU
  Company Number: None

PATIENT
  Age: 43 Year
  Sex: Female
  Weight: 81.9 kg

DRUGS (2)
  1. POLYMYXIN B SULFATE AND TRIMETHOPRIM [Suspect]
     Active Substance: POLYMYXIN B SULFATE\TRIMETHOPRIM SULFATE
     Indication: Conjunctivitis
     Dosage: OTHER QUANTITY : 1 DROP(S);?FREQUENCY : 4 TIMES A DAY;?
     Route: 047
  2. DOXYCYCLINE [Suspect]
     Active Substance: DOXYCYCLINE

REACTIONS (4)
  - Eye oedema [None]
  - Pain [None]
  - Burning sensation [None]
  - Eye swelling [None]

NARRATIVE: CASE EVENT DATE: 20250524
